FAERS Safety Report 12554320 (Version 5)
Quarter: 2016Q3

REPORT INFORMATION
  Report Type: Spontaneous
  Country: US (occurrence: US)
  Receive Date: 20160713
  Receipt Date: 20160906
  Transmission Date: 20161109
  Serious: Yes (Other)
  Sender: FDA-Public Use
  Company Number: US-SA-2016SA078377

PATIENT
  Age: 66 Year
  Sex: Female

DRUGS (1)
  1. GOLD BOND ULTIMATE ROUGH AND BUMPY SKIN CREAM [Suspect]
     Active Substance: COSMETICS
     Route: 061

REACTIONS (8)
  - Acne [Unknown]
  - Pruritus [Unknown]
  - Oropharyngeal pain [Unknown]
  - Limb injury [Recovering/Resolving]
  - Pain [Recovering/Resolving]
  - Activities of daily living impaired [Recovering/Resolving]
  - Skin haemorrhage [Recovering/Resolving]
  - Rash pustular [Recovering/Resolving]

NARRATIVE: CASE EVENT DATE: 20160413
